FAERS Safety Report 6810415-X (Version None)
Quarter: 2010Q2

REPORT INFORMATION
  Report Type: 
  Country: None (occurrence: None)
  Receive Date: 20100630
  Receipt Date: 20100622
  Transmission Date: 20101027
  Serious: Yes (Other)
  Sender: FDA-Public Use
  Company Number: CN-JNJFOC-20100607943

PATIENT
  Age: 22 Year
  Sex: Male

DRUGS (6)
  1. INVEGA [Suspect]
     Indication: SCHIZOPHRENIA
     Route: 048
  2. INVEGA [Suspect]
     Route: 048
  3. INVEGA [Suspect]
     Route: 048
  4. VITAMIN B6 [Concomitant]
     Indication: DRUG USE FOR UNKNOWN INDICATION
  5. CLONAZEPAM [Concomitant]
     Indication: SCHIZOPHRENIA
     Route: 030
  6. MAGNESIUM VALPROATE [Concomitant]
     Indication: SCHIZOPHRENIA
     Route: 048

REACTIONS (1)
  - ALANINE AMINOTRANSFERASE INCREASED [None]
